FAERS Safety Report 7589204-7 (Version None)
Quarter: 2011Q3

REPORT INFORMATION
  Report Type: 
  Country: None (occurrence: None)
  Receive Date: 20110705
  Receipt Date: 20100612
  Transmission Date: 20111222
  Serious: Yes (Other)
  Sender: FDA-Public Use
  Company Number: US-BAYER-201024959NA

PATIENT
  Age: 55 Year
  Sex: Male
  Weight: 83.9 kg

DRUGS (20)
  1. FENTANYL [Concomitant]
     Dosage: DAILY DOSE 200 ?G
     Route: 042
     Dates: start: 20070526, end: 20070526
  2. PHENYLEPHRINE HCL [Concomitant]
     Dosage: UNK
     Route: 042
     Dates: start: 20070526, end: 20070526
  3. ACETAMINOPHEN [Concomitant]
     Route: 048
  4. PROTONIX [Concomitant]
     Dosage: DAILY DOSE 40 MG/D
     Route: 048
  5. MICRO-K [Concomitant]
     Dosage: DAILY DOSE 20 MEQ/DL
     Route: 048
  6. VERSED [Concomitant]
     Dosage: UNK
     Route: 042
     Dates: start: 20070526, end: 20070526
  7. ACETYLSALICYLIC ACID SRT [Concomitant]
     Route: 048
  8. TRASYLOL [Suspect]
     Indication: AORTIC VALVE REPAIR
     Dosage: 50 ML, Q1HR
     Route: 042
     Dates: start: 20070526, end: 20070526
  9. LOPRESSOR [Concomitant]
     Dosage: DAILY DOSE 50 MG/D
     Route: 048
  10. DOPAMINE HCL [Concomitant]
     Dosage: UNK
     Route: 042
     Dates: start: 20070526
  11. SIMVASTATIN [Concomitant]
     Route: 048
  12. LASIX [Concomitant]
     Dosage: DAILY DOSE 40 MG/D
     Route: 048
  13. DARVOCET [Concomitant]
     Indication: PAIN
     Dosage: 1-2 AS NEEDED
  14. PAVULON [Concomitant]
     Dosage: UNK
     Dates: start: 20070526, end: 20070526
  15. TRASYLOL [Suspect]
     Indication: AORTIC DISSECTION
     Dosage: 200 ML LOADING DOSE
     Route: 042
     Dates: start: 20070526
  16. TRASYLOL [Suspect]
     Indication: AORTIC SURGERY
  17. NITRIC OXIDE [Concomitant]
     Dosage: UNK
     Dates: start: 20070526, end: 20070526
  18. FENTANYL [Concomitant]
     Dosage: UNK
     Route: 042
     Dates: start: 20070526, end: 20070526
  19. NITROGLYCERIN [Concomitant]
     Dosage: UNK
     Route: 042
     Dates: start: 20070526, end: 20070526
  20. HEPARIN [Concomitant]
     Dosage: 20000 U, UNK
     Route: 042
     Dates: start: 20070526, end: 20070526

REACTIONS (6)
  - INJURY [None]
  - RENAL FAILURE ACUTE [None]
  - PAIN [None]
  - RENAL IMPAIRMENT [None]
  - CEREBROVASCULAR ACCIDENT [None]
  - RENAL FAILURE [None]
